FAERS Safety Report 20025056 (Version 1)
Quarter: 2021Q4

REPORT INFORMATION
  Report Type: Other
  Country: US (occurrence: None)
  Receive Date: 20211102
  Receipt Date: 20211102
  Transmission Date: 20220303
  Serious: Yes (Other)
  Sender: FDA-Public Use
  Company Number: US-ROCHE-2942815

PATIENT
  Sex: Female

DRUGS (14)
  1. ACTEMRA [Suspect]
     Active Substance: TOCILIZUMAB
     Indication: Autoimmune disorder
     Route: 058
  2. ACTEMRA [Suspect]
     Active Substance: TOCILIZUMAB
  3. ACTEMRA [Suspect]
     Active Substance: TOCILIZUMAB
  4. FOSAMAX [Concomitant]
     Active Substance: ALENDRONATE SODIUM
     Route: 048
  5. ASPIRIN [Concomitant]
     Active Substance: ASPIRIN
     Route: 048
  6. VALISONE [Concomitant]
     Active Substance: BETAMETHASONE VALERATE
     Indication: Eczema
  7. VALISONE [Concomitant]
     Active Substance: BETAMETHASONE VALERATE
     Dosage: FOR 2 WEEKS
  8. CALCIUM ACETATE [Concomitant]
     Active Substance: CALCIUM ACETATE
  9. ZYRTEC (UNITED STATES) [Concomitant]
     Route: 048
  10. CLOBETASOL PROPIONATE [Concomitant]
     Active Substance: CLOBETASOL PROPIONATE
     Route: 061
  11. ESTRACE [Concomitant]
     Active Substance: ESTRADIOL
     Dosage: 1 TO 3 TIMES A WEEK
     Route: 067
  12. PRILOSEC [Concomitant]
     Active Substance: OMEPRAZOLE MAGNESIUM
     Route: 048
  13. DELTASONE [Concomitant]
     Active Substance: PREDNISONE
     Route: 048
  14. NASACORT AQ [Concomitant]
     Active Substance: TRIAMCINOLONE ACETONIDE
     Dosage: 2 SPRAY DAILY
     Route: 045

REACTIONS (1)
  - Arteritis [Unknown]
